FAERS Safety Report 4896268-8 (Version None)
Quarter: 2006Q1

REPORT INFORMATION
  Report Type: 
  Country: None (occurrence: None)
  Receive Date: 20060126
  Receipt Date: 20060113
  Transmission Date: 20060701
  Serious: Yes (Other)
  Sender: FDA-Public Use
  Company Number: 2005160754

PATIENT
  Age: 42 Year
  Sex: Female
  Weight: 87.9978 kg

DRUGS (3)
  1. AROMASIN [Suspect]
     Indication: BREAST CANCER
     Dosage: 25 MG (25 MG, 1 IN 1 D); ORAL
     Route: 048
     Dates: start: 20050210, end: 20050901
  2. ACTONEL [Concomitant]
  3. LUPRON [Concomitant]

REACTIONS (2)
  - CHOKING [None]
  - PHARYNGEAL OEDEMA [None]
